FAERS Safety Report 5430459-2 (Version None)
Quarter: 2007Q3

REPORT INFORMATION
  Report Type: 
  Country: None (occurrence: None)
  Receive Date: 20070828
  Receipt Date: 20070813
  Transmission Date: 20080115
  Serious: Yes (Other)
  Sender: FDA-Public Use
  Company Number: 2007US-09343

PATIENT
  Age: 63 Year
  Sex: Female

DRUGS (6)
  1. ISOPTIN SR [Suspect]
     Indication: TACHYCARDIA
     Dosage: 120 MG, 2 IN1  DOSE, ORAL
     Route: 048
  2. ESTRADIOL [Concomitant]
  3. DYDROGESTONE UNKNOWN [Concomitant]
  4. CLORAZEPATE DIPOTASSIUM UNKNOWN [Concomitant]
  5. NITROFURANTOIN [Concomitant]
  6. FUMETERRE UNKNOWN [Concomitant]

REACTIONS (5)
  - ABDOMINAL PAIN [None]
  - EPISTAXIS [None]
  - RENAL PAIN [None]
  - SKIN HAEMORRHAGE [None]
  - VAGINAL HAEMORRHAGE [None]
